FAERS Safety Report 6883508-9 (Version None)
Quarter: 2010Q3

REPORT INFORMATION
  Report Type: 
  Country: None (occurrence: None)
  Receive Date: 20100708
  Receipt Date: 20091208
  Transmission Date: 20110219
  Serious: Yes (Life-Threatening, Hospitalization, Disabling, Other)
  Sender: FDA-Public Use
  Company Number: 2009285225

PATIENT
  Age: 41 Year
  Sex: Female
  Weight: 96.6 kg

DRUGS (1)
  1. CHANTIX [Suspect]
     Indication: SMOKING CESSATION THERAPY
     Dosage: 1 MG, TWICE DAILY, ORAL
     Route: 048
     Dates: start: 20090419, end: 20090517

REACTIONS (1)
  - SUICIDE ATTEMPT [None]
